FAERS Safety Report 8062223-2 (Version None)
Quarter: 2012Q1

REPORT INFORMATION
  Report Type: 
  Country: None (occurrence: None)
  Receive Date: 20120123
  Receipt Date: 20120117
  Transmission Date: 20120608
  Serious: Yes (Other)
  Sender: FDA-Public Use
  Company Number: BE-AMGEN-BELSP2012003725

PATIENT

DRUGS (5)
  1. BLEOMYCIN SULFATE [Concomitant]
  2. PREDNISONE TAB [Concomitant]
  3. NEULASTA [Suspect]
     Indication: CHEMOTHERAPY
  4. DOXORUBICIN HCL [Concomitant]
  5. VINDESINE [Concomitant]

REACTIONS (1)
  - PULMONARY TOXICITY [None]
